FAERS Safety Report 25856243 (Version 1)
Quarter: 2025Q3

REPORT INFORMATION
  Report Type: Spontaneous
  Country: US (occurrence: US)
  Receive Date: 20250928
  Receipt Date: 20250928
  Transmission Date: 20251020
  Serious: No
  Sender: ELI LILLY AND COMPANY
  Company Number: US-ELI_LILLY_AND_COMPANY-US202509021214

PATIENT
  Age: 37 Year
  Sex: Male

DRUGS (2)
  1. ZEPBOUND [Suspect]
     Active Substance: TIRZEPATIDE
     Indication: Weight control
     Route: 065
     Dates: start: 20250813, end: 20250903
  2. ZEPBOUND [Suspect]
     Active Substance: TIRZEPATIDE
     Indication: Sleep apnoea syndrome

REACTIONS (1)
  - Heart rate increased [Recovered/Resolved]

NARRATIVE: CASE EVENT DATE: 20250901
